FAERS Safety Report 26149193 (Version 1)
Quarter: 2025Q4

REPORT INFORMATION
  Report Type: Spontaneous
  Country: US (occurrence: US)
  Receive Date: 20251212
  Receipt Date: 20251212
  Transmission Date: 20260118
  Serious: No
  Sender: ABBVIE
  Company Number: US-ABBVIE-6586126

PATIENT
  Sex: Female
  Weight: 51.255 kg

DRUGS (1)
  1. HUMIRA [Suspect]
     Active Substance: ADALIMUMAB
     Indication: Product used for unknown indication
     Route: 058

REACTIONS (5)
  - Pruritus [Unknown]
  - Skin reaction [Unknown]
  - Erythema [Unknown]
  - Pain [Unknown]
  - Drug hypersensitivity [Unknown]
